FAERS Safety Report 7289095-8 (Version None)
Quarter: 2011Q1

REPORT INFORMATION
  Report Type: 
  Country: None (occurrence: None)
  Receive Date: 20110201
  Receipt Date: 20110119
  Transmission Date: 20110831
  Serious: Yes (Other)
  Sender: FDA-Public Use
  Company Number: 2010SP039711

PATIENT
  Age: 24 Year
  Sex: Female
  Weight: 68.9467 kg

DRUGS (6)
  1. ATOVAN [Concomitant]
  2. PHENERGAN EXPECTORANT W/ CODEINE [Concomitant]
  3. ZITHROMAX [Concomitant]
  4. CELEXA [Concomitant]
  5. IMPLANON [Suspect]
     Indication: CONTRACEPTION
     Dosage: 1 DF;
     Dates: start: 20100310, end: 20100712
  6. LAMICTAL [Concomitant]

REACTIONS (3)
  - PREGNANCY WITH IMPLANT CONTRACEPTIVE [None]
  - PREMATURE LABOUR [None]
  - DRUG EXPOSURE DURING PREGNANCY [None]
